FAERS Safety Report 9200594 (Version 1)
Quarter: 2013Q1

REPORT INFORMATION
  Report Type: Report from Study
  Country: US (occurrence: US)
  Receive Date: 20130329
  Receipt Date: 20130329
  Transmission Date: 20140127
  Serious: Yes (Other)
  Sender: FDA-Public Use
  Company Number: US-PFIZER INC-2008003427JJ

PATIENT
  Age: 60 Year
  Sex: Female
  Weight: 81.65 kg

DRUGS (6)
  1. MOTRIN [Suspect]
     Indication: FIBROMYALGIA
     Dosage: 800 MG, 1X/DAY
     Route: 048
     Dates: start: 2004
  2. SYNTHROID [Concomitant]
     Indication: THYROID DISORDER
     Dosage: 75 MG, UNK
  3. METOPROLOL TARTRATE [Concomitant]
     Indication: HYPERTENSION
  4. LORAZEPAM [Concomitant]
  5. IMODIUM ^JANSSEN^ [Concomitant]
     Route: 065
  6. VITAMIN E [Concomitant]

REACTIONS (3)
  - Arthralgia [Not Recovered/Not Resolved]
  - Gait disturbance [Not Recovered/Not Resolved]
  - Weight decreased [Unknown]
